FAERS Safety Report 18502354 (Version 1)
Quarter: 2020Q4

REPORT INFORMATION
  Report Type: Other
  Country: US (occurrence: US)
  Receive Date: 20201113
  Receipt Date: 20201113
  Transmission Date: 20210114
  Serious: No
  Sender: FDA-Public Use
  Company Number: US-LEADIANT BIOSCIENCES INC-2020STPI000357

PATIENT
  Sex: Male

DRUGS (8)
  1. CYSTARAN [Suspect]
     Active Substance: CYSTEAMINE HYDROCHLORIDE
     Indication: CYSTINOSIS
     Dosage: 1 DROP, EVERY WORKING HOUR
     Route: 047
     Dates: start: 20160209
  2. POTASSIUM CHLORIDE. [Concomitant]
     Active Substance: POTASSIUM CHLORIDE
  3. SODIUM BICARBONATE. [Concomitant]
     Active Substance: SODIUM BICARBONATE
  4. PROCYSBI [Concomitant]
     Active Substance: CYSTEAMINE BITARTRATE
  5. CALCITROL [CALCITRIOL] [Concomitant]
     Active Substance: CALCITRIOL
  6. NUTROPIN AQ [Concomitant]
     Active Substance: SOMATROPIN
  7. LEVOCARNITIN [Concomitant]
  8. AMLODIPINE [Concomitant]
     Active Substance: AMLODIPINE BESYLATE

REACTIONS (1)
  - Eye irritation [Not Recovered/Not Resolved]
